FAERS Safety Report 22214492 (Version 3)
Quarter: 2023Q2

REPORT INFORMATION
  Report Type: Spontaneous
  Country: US (occurrence: None)
  Receive Date: 20230414
  Receipt Date: 20230526
  Transmission Date: 20230721
  Serious: No
  Sender: FDA-Public Use
  Company Number: 2023A083093

PATIENT
  Age: 75 Year
  Sex: Female

DRUGS (2)
  1. BYDUREON BCISE [Suspect]
     Active Substance: EXENATIDE
     Indication: Blood glucose abnormal
     Route: 058
     Dates: start: 20230324
  2. BYDUREON BCISE [Suspect]
     Active Substance: EXENATIDE
     Indication: Obesity
     Route: 058
     Dates: start: 20230324

REACTIONS (3)
  - Incorrect dose administered by device [Unknown]
  - Off label use [Unknown]
  - Device delivery system issue [Unknown]

NARRATIVE: CASE EVENT DATE: 20230407
